FAERS Safety Report 9965191 (Version 1)
Quarter: 2014Q1

REPORT INFORMATION
  Report Type: Report from Study
  Country: US (occurrence: US)
  Receive Date: 20140305
  Receipt Date: 20140305
  Transmission Date: 20141002
  Serious: No
  Sender: FDA-Public Use
  Company Number: US-ABBVIE-13P-163-1124209-00

PATIENT
  Age: 53 Year
  Sex: Female

DRUGS (9)
  1. HUMIRA [Suspect]
     Indication: COLITIS ULCERATIVE
     Dates: start: 20130507, end: 20130507
  2. HUMIRA [Suspect]
     Dates: start: 20130521, end: 20130521
  3. HUMIRA [Suspect]
     Dates: start: 20130604
  4. SULFASALAZINE [Concomitant]
     Indication: COLITIS ULCERATIVE
  5. LISINOPRIL [Concomitant]
     Indication: HYPERTENSION
  6. OMEPRAZOLE [Concomitant]
     Indication: COLITIS ULCERATIVE
     Dosage: 20 MG DAILY
  7. IRON [Concomitant]
     Indication: BLOOD IRON DECREASED
  8. FOLIC ACID [Concomitant]
     Indication: BLOOD IRON DECREASED
     Dosage: 800 MG DAILY
  9. FUROSEMIDE [Concomitant]
     Indication: FLUID RETENTION

REACTIONS (2)
  - Back pain [Not Recovered/Not Resolved]
  - Headache [Not Recovered/Not Resolved]
